FAERS Safety Report 5015998-0 (Version None)
Quarter: 2006Q2

REPORT INFORMATION
  Report Type: 
  Country: None (occurrence: None)
  Receive Date: 20060531
  Receipt Date: 20060531
  Transmission Date: 20061013
  Serious: Yes (Other)
  Sender: FDA-Public Use
  Company Number: None

PATIENT
  Sex: Female
  Weight: 94.8018 kg

DRUGS (2)
  1. LIPITOR [Suspect]
     Indication: HYPERLIPIDAEMIA
     Dosage: QD 1 PO
     Route: 048
     Dates: start: 20021115, end: 20030101
  2. MEVACOR [Suspect]
     Indication: HYPERLIPIDAEMIA
     Dosage: QD 1 PO
     Route: 048
     Dates: start: 20030102, end: 20030303

REACTIONS (1)
  - MYALGIA [None]
